FAERS Safety Report 5106869-X (Version None)
Quarter: 2006Q3

REPORT INFORMATION
  Report Type: 
  Country: None (occurrence: None)
  Receive Date: 20060913
  Receipt Date: 20060830
  Transmission Date: 20061208
  Serious: Yes (Hospitalization)
  Sender: FDA-Public Use
  Company Number: 02100-JPN-06-0413

PATIENT
  Age: 66 Year
  Sex: Male

DRUGS (2)
  1. CILOSTAZOL [Suspect]
     Indication: CEREBRAL INFARCTION
     Dosage: ONE OF 200 OR 81 MG; ORAL
     Route: 048
     Dates: start: 20060224, end: 20060906
  2. ASPIRIN [Suspect]
     Indication: CEREBRAL INFARCTION
     Dosage: ONE OF 200 OR 81 MG; ORAL
     Route: 048
     Dates: start: 20060224, end: 20060906

REACTIONS (2)
  - GASTRIC ULCER [None]
  - HAEMOGLOBIN DECREASED [None]
